FAERS Safety Report 26076258 (Version 1)
Quarter: 2025Q4

REPORT INFORMATION
  Report Type: Spontaneous
  Country: US (occurrence: US)
  Receive Date: 20251121
  Receipt Date: 20251121
  Transmission Date: 20260118
  Serious: Yes (Other)
  Sender: INCYTE
  Company Number: US-EVENT-004981

PATIENT

DRUGS (1)
  1. JAKAFI [Suspect]
     Active Substance: RUXOLITINIB
     Indication: Ill-defined disorder
     Dosage: 5 MILLIGRAM, QD

REACTIONS (2)
  - Laboratory test abnormal [Unknown]
  - Off label use [Unknown]
